FAERS Safety Report 5478520-0 (Version None)
Quarter: 2007Q4

REPORT INFORMATION
  Report Type: 
  Country: None (occurrence: None)
  Receive Date: 20071005
  Receipt Date: 20071004
  Transmission Date: 20080405
  Serious: Yes (Other)
  Sender: FDA-Public Use
  Company Number: FR-GENENTECH-246331

PATIENT
  Age: 51 Year
  Sex: Male

DRUGS (4)
  1. RITUXAN [Suspect]
     Indication: RHEUMATOID ARTHRITIS
     Dates: start: 20060201
  2. SPECIAFOLDINE [Concomitant]
     Indication: BACK PAIN
  3. CORTISONE ACETATE TAB [Concomitant]
     Indication: BACK PAIN
     Dosage: 5 MG, UNK
  4. NOVATREX [Concomitant]
     Indication: BACK PAIN

REACTIONS (4)
  - DYSPNOEA [None]
  - FACE OEDEMA [None]
  - PRURITUS [None]
  - URTICARIA [None]
